FAERS Safety Report 14199469 (Version 1)
Quarter: 2017Q4

REPORT INFORMATION
  Report Type: Spontaneous
  Country: US (occurrence: US)
  Receive Date: 20171117
  Receipt Date: 20171117
  Transmission Date: 20180321
  Serious: No
  Sender: FDA-Public Use
  Company Number: US-GLAXOSMITHKLINE-US2017GSK174094

PATIENT
  Sex: Female

DRUGS (1)
  1. LAMICTAL [Suspect]
     Active Substance: LAMOTRIGINE
     Indication: PARTIAL SEIZURES
     Dosage: UNK

REACTIONS (1)
  - Weight increased [Unknown]
